FAERS Safety Report 7676552-5 (Version None)
Quarter: 2011Q3

REPORT INFORMATION
  Report Type: 
  Country: None (occurrence: None)
  Receive Date: 20110811
  Receipt Date: 20110805
  Transmission Date: 20111222
  Serious: Yes (Death, Hospitalization, Other)
  Sender: FDA-Public Use
  Company Number: JP-BAYER-2011-060524

PATIENT
  Age: 71 Year
  Sex: Male
  Weight: 87 kg

DRUGS (10)
  1. FAMOTIDINE [Concomitant]
     Indication: GASTRITIS
     Dosage: 20 MG, QD
     Route: 048
     Dates: start: 20110502, end: 20110802
  2. ROBAXIN [Concomitant]
     Indication: MUSCLE TIGHTNESS
     Dosage: 0.25 G, QD
     Route: 048
     Dates: start: 20110502, end: 20110719
  3. NEXAVAR [Suspect]
     Indication: HEPATIC NEOPLASM MALIGNANT
     Dosage: 200 MG, BID
     Route: 048
     Dates: start: 20110502, end: 20110609
  4. CELOOP KAYAKU [Concomitant]
     Indication: GASTRITIS
     Dosage: 150 MG, QD
     Route: 048
     Dates: start: 20110502, end: 20110710
  5. LOXONIN [Concomitant]
     Indication: INFLAMMATION
     Dosage: 0.6 G, QD
     Route: 048
     Dates: start: 20110502, end: 20110719
  6. LOXONIN [Concomitant]
     Indication: ANALGESIC THERAPY
  7. NEXAVAR [Suspect]
     Dosage: 400 MG, BID
     Route: 048
     Dates: start: 20110614, end: 20110711
  8. CONTOL [Concomitant]
     Indication: ANXIOLYTIC THERAPY
     Dosage: 0.05 G, QD
     Route: 048
     Dates: start: 20110502, end: 20110719
  9. UREPEARL [Concomitant]
     Indication: PROPHYLAXIS
     Dosage: UNK
     Route: 061
     Dates: start: 20110502, end: 20110711
  10. URSO 250 [Concomitant]
     Indication: HEPATITIS C
     Dosage: 300 MG, QD
     Route: 048
     Dates: start: 20110502, end: 20110802

REACTIONS (9)
  - BLOOD ALBUMIN DECREASED [None]
  - PYREXIA [None]
  - HYPERBILIRUBINAEMIA [None]
  - PROTHROMBIN LEVEL DECREASED [None]
  - ALANINE AMINOTRANSFERASE INCREASED [None]
  - JAUNDICE [None]
  - PROTHROMBIN TIME PROLONGED [None]
  - HEPATIC NEOPLASM MALIGNANT [None]
  - ASPARTATE AMINOTRANSFERASE INCREASED [None]
